FAERS Safety Report 5803719-0 (Version None)
Quarter: 2008Q3

REPORT INFORMATION
  Report Type: 
  Country: None (occurrence: None)
  Receive Date: 20080708
  Receipt Date: 20071116
  Transmission Date: 20090109
  Serious: No
  Sender: FDA-Public Use
  Company Number: US-AMGEN-KDL248843

PATIENT
  Sex: Male

DRUGS (7)
  1. KINERET [Suspect]
     Indication: JUVENILE ARTHRITIS
     Route: 058
     Dates: start: 20070601, end: 20070828
  2. VASOTEC [Concomitant]
  3. MINOCIN [Concomitant]
  4. PRILOSEC [Concomitant]
  5. SOMA [Concomitant]
  6. AZULFIDINE EN-TABS [Concomitant]
  7. DOLOBID [Concomitant]

REACTIONS (3)
  - CELLULITIS [None]
  - ESCHERICHIA INFECTION [None]
  - INJECTION SITE ABSCESS [None]
